FAERS Safety Report 5087353-9 (Version None)
Quarter: 2006Q3

REPORT INFORMATION
  Report Type: 
  Country: None (occurrence: None)
  Receive Date: 20060821
  Receipt Date: 20060808
  Transmission Date: 20061208
  Serious: Yes (Hospitalization)
  Sender: FDA-Public Use
  Company Number: HQWYE254121JUL06

PATIENT
  Age: 18 Year
  Sex: Female

DRUGS (6)
  1. PREMARIN [Suspect]
     Indication: MENSTRUATION IRREGULAR
     Dosage: 0.625 MG 1X PER 1 DAY ORAL
     Route: 048
     Dates: start: 20030501, end: 20030601
  2. PREMARIN [Suspect]
     Indication: MENSTRUATION IRREGULAR
     Dosage: 0.625 MG 1X PER 1 DAY ORAL
     Route: 048
     Dates: start: 20030901, end: 20030901
  3. CURCUMA LONGA (CURCUMA LONGA) [Suspect]
     Dosage: SEE IMAGE
     Dates: start: 20030201
  4. CURCUMA LONGA (CURCUMA LONGA) [Suspect]
     Dosage: SEE IMAGE
     Dates: start: 20030601
  5. PLANOVIR (NORGESTREL/ETHINYL ESTRADIOL) [Suspect]
     Indication: MENSTRUATION IRREGULAR
     Dosage: 1 TABLET 1X PER DAY ORAL
     Route: 048
     Dates: start: 20030501, end: 20030601
  6. PLANOVIR (NORGESTREL/ETHINYL ESTRADIOL) [Suspect]
     Indication: MENSTRUATION IRREGULAR
     Dosage: 1 TABLET 1X PER DAY ORAL
     Route: 048
     Dates: start: 20030901, end: 20030901

REACTIONS (8)
  - AUTOIMMUNE HEPATITIS [None]
  - CONDITION AGGRAVATED [None]
  - HEPATIC CIRRHOSIS [None]
  - HEPATIC NECROSIS [None]
  - HEPATOCELLULAR DAMAGE [None]
  - REFUSAL OF TREATMENT BY PATIENT [None]
  - SPLENOMEGALY [None]
  - VARICES OESOPHAGEAL [None]
